FAERS Safety Report 7482854-8 (Version None)
Quarter: 2011Q2

REPORT INFORMATION
  Report Type: 
  Country: None (occurrence: None)
  Receive Date: 20110516
  Receipt Date: 20110511
  Transmission Date: 20111010
  Serious: Yes (Hospitalization, Disabling, Other)
  Sender: FDA-Public Use
  Company Number: BR-PFIZER INC-2010147001

PATIENT
  Age: 8 Year
  Sex: Male
  Weight: 23 kg

DRUGS (9)
  1. RENAGEL [Concomitant]
     Indication: HYPERPHOSPHATAEMIA
     Dosage: UNK
     Dates: start: 20110101
  2. ATENOLOL [Suspect]
     Indication: HYPERTENSION
     Dosage: 50 MG, 2X/DAY
     Dates: start: 20100101
  3. ENALAPRIL MALEATE [Suspect]
     Indication: HYPERTENSION
     Dosage: 10 MG, 2X/DAY
     Dates: start: 20100101
  4. HEMAX [Concomitant]
     Indication: ANAEMIA
     Dosage: UNK
     Route: 058
     Dates: start: 20050101
  5. SODIUM BICARBONATE [Concomitant]
     Indication: HYPERKALAEMIA
     Dosage: UNK
     Dates: start: 20050101
  6. APRESOLINE [Suspect]
     Indication: HYPERTENSION
     Dosage: 50 MG, 3X/DAY
     Dates: start: 20100101
  7. OMEPRAZOLE [Concomitant]
     Indication: GASTRIC DISORDER
     Dosage: UNK
     Dates: start: 20050101
  8. FOLIC ACID [Concomitant]
     Dosage: UNK
     Dates: start: 20050101
  9. AMLODIPINE BESYLATE [Suspect]
     Indication: HYPERTENSION
     Dosage: 5 MG, 2X/DAY
     Dates: start: 20100101

REACTIONS (4)
  - HYPERTENSION [None]
  - DRUG INEFFECTIVE [None]
  - CONVULSION [None]
  - CEREBROVASCULAR ACCIDENT [None]
